FAERS Safety Report 15315667 (Version 5)
Quarter: 2025Q4

REPORT INFORMATION
  Report Type: Spontaneous
  Country: EU (occurrence: EU)
  Receive Date: 20180824
  Receipt Date: 20251024
  Transmission Date: 20260117
  Serious: Yes (Other)
  Sender: NOVARTIS
  Company Number: PHHY2018RO075755

PATIENT
  Sex: Female

DRUGS (2)
  1. CYCLOSPORINE [Suspect]
     Active Substance: CYCLOSPORINE
     Indication: Immunosuppressant drug therapy
     Dosage: UNK
     Route: 065
  2. CYCLOSPORINE [Suspect]
     Active Substance: CYCLOSPORINE
     Indication: Systemic lupus erythematosus

REACTIONS (8)
  - Acute hepatitis B [Unknown]
  - Subacute cutaneous lupus erythematosus [Unknown]
  - Ochronosis [Unknown]
  - Skin lesion [Unknown]
  - Photosensitivity reaction [Unknown]
  - Skin hyperpigmentation [Unknown]
  - Addison^s disease [Unknown]
  - Product use in unapproved indication [Unknown]
